FAERS Safety Report 25437754 (Version 1)
Quarter: 2025Q2

REPORT INFORMATION
  Report Type: Report from Study
  Country: US (occurrence: US)
  Receive Date: 20250616
  Receipt Date: 20250616
  Transmission Date: 20250716
  Serious: Yes (Hospitalization)
  Sender: ROCHE
  Company Number: US-ROCHE-10000249160

PATIENT
  Age: 80 Year
  Sex: Female
  Weight: 74.84 kg

DRUGS (2)
  1. LUCENTIS [Suspect]
     Active Substance: RANIBIZUMAB
     Indication: Neovascular age-related macular degeneration
     Dosage: LAST DOSE: 29/JAN/2025.
     Route: 065
     Dates: start: 20230423
  2. LUCENTIS [Suspect]
     Active Substance: RANIBIZUMAB
     Dosage: RESTART DRUG: 23-APR-2025
     Route: 065

REACTIONS (3)
  - Pneumonia [Unknown]
  - Memory impairment [Not Recovered/Not Resolved]
  - Off label use [Unknown]

NARRATIVE: CASE EVENT DATE: 20250331
